FAERS Safety Report 4386066-6 (Version None)
Quarter: 2004Q2

REPORT INFORMATION
  Report Type: 
  Country: None (occurrence: None)
  Receive Date: 20040607
  Receipt Date: 20030818
  Transmission Date: 20050107
  Serious: Yes (Other)
  Sender: FDA-Public Use
  Company Number: 344790

PATIENT
  Sex: Male
  Weight: 4 kg

DRUGS (1)
  1. ISOTRETINOIN [Suspect]
     Dosage: 20 MG DAILY ORAL
     Route: 048
     Dates: start: 20021115, end: 20030215

REACTIONS (3)
  - LIVE BIRTH [None]
  - NORMAL NEWBORN [None]
  - PREGNANCY [None]
